FAERS Safety Report 16253493 (Version 1)
Quarter: 2019Q2

REPORT INFORMATION
  Report Type: Report from Study
  Country: None (occurrence: US)
  Receive Date: 20190430
  Receipt Date: 20190430
  Transmission Date: 20190711
  Serious: Yes (Other)
  Sender: FDA-Public Use
  Company Number: US-ABBVIE-19K-163-2716563-00

PATIENT
  Sex: Female

DRUGS (1)
  1. HUMIRA [Suspect]
     Active Substance: ADALIMUMAB
     Indication: COLITIS ULCERATIVE
     Dosage: CITRATE FREE
     Route: 058

REACTIONS (9)
  - Gastric infection [Unknown]
  - Headache [Unknown]
  - Increased tendency to bruise [Unknown]
  - Vomiting [Unknown]
  - Weight decreased [Unknown]
  - Dizziness [Unknown]
  - Loss of consciousness [Unknown]
  - Colitis ulcerative [Unknown]
  - Dehydration [Unknown]
